FAERS Safety Report 21921291 (Version 1)
Quarter: 2023Q1

REPORT INFORMATION
  Report Type: Spontaneous
  Country: US (occurrence: None)
  Receive Date: 20230123
  Receipt Date: 20230123
  Transmission Date: 20230418
  Serious: Yes (Hospitalization)
  Sender: FDA-Public Use
  Company Number: None

PATIENT
  Age: 46 Year
  Sex: Female
  Weight: 90.5 kg

DRUGS (1)
  1. NIVOLUMAB [Suspect]
     Active Substance: NIVOLUMAB
     Indication: Glioblastoma multiforme
     Dosage: FREQUENCY : MONTHLY;?
     Route: 042
     Dates: start: 20161005, end: 20170222

REACTIONS (7)
  - Headache [None]
  - Confusional state [None]
  - Road traffic accident [None]
  - Head injury [None]
  - Blood pressure increased [None]
  - Unresponsive to stimuli [None]
  - Pupil fixed [None]

NARRATIVE: CASE EVENT DATE: 20170301
